FAERS Safety Report 14679677 (Version 1)
Quarter: 2018Q1

REPORT INFORMATION
  Report Type: Spontaneous
  Country: FI (occurrence: FI)
  Receive Date: 20180326
  Receipt Date: 20180326
  Transmission Date: 20180509
  Serious: Yes (Other)
  Sender: FDA-Public Use
  Company Number: FI-NOVOPROD-591041

PATIENT
  Age: 73 Year
  Sex: Male

DRUGS (1)
  1. VICTOZA [Suspect]
     Active Substance: LIRAGLUTIDE
     Indication: TYPE 2 DIABETES MELLITUS
     Dosage: UNK
     Route: 065
     Dates: start: 201802

REACTIONS (3)
  - Blood pressure increased [Unknown]
  - Hiccups [Unknown]
  - Heart rate increased [Unknown]

NARRATIVE: CASE EVENT DATE: 2018
